FAERS Safety Report 17502148 (Version 2)
Quarter: 2020Q1

REPORT INFORMATION
  Report Type: Spontaneous
  Country: GB (occurrence: GB)
  Receive Date: 20200305
  Receipt Date: 20200323
  Transmission Date: 20200409
  Serious: Yes (Other)
  Sender: FDA-Public Use
  Company Number: GB-MYLANLABS-2020M1024040

PATIENT
  Age: 72 Year
  Sex: Female
  Weight: 52 kg

DRUGS (6)
  1. LEVETIRACETAM. [Suspect]
     Active Substance: LEVETIRACETAM
     Dosage: 500MG AM AND 1G PM
     Route: 048
     Dates: start: 20191120, end: 20200207
  2. PHENYTOIN SODIUM. [Concomitant]
     Active Substance: PHENYTOIN SODIUM
     Dosage: AT NIGHT
     Dates: start: 20121026
  3. THEICAL D3 [Concomitant]
     Dosage: 1 DOSAGE FORM, QD
     Dates: start: 20160617
  4. LEVETIRACETAM. [Suspect]
     Active Substance: LEVETIRACETAM
     Indication: EPILEPSY
     Dosage: TAKE ONE IN THE MORNING AND TWO AT NIGHT
     Dates: start: 20191114
  5. PICATO [Concomitant]
     Active Substance: INGENOL MEBUTATE
     Dosage: APPLY FOR 3 DAYS
     Dates: start: 20191122, end: 20191125
  6. DERMOL                             /01330701/ [Concomitant]
     Dosage: USE AS DIRECTED
     Dates: start: 20040616

REACTIONS (3)
  - Product substitution issue [Unknown]
  - Seizure [Recovered/Resolved]
  - Epilepsy [Recovered/Resolved]

NARRATIVE: CASE EVENT DATE: 20200207
